FAERS Safety Report 21590412 (Version 1)
Quarter: 2022Q4

REPORT INFORMATION
  Report Type: Spontaneous
  Country: US (occurrence: None)
  Receive Date: 20221111
  Receipt Date: 20221111
  Transmission Date: 20230113
  Serious: Yes (Other)
  Sender: FDA-Public Use
  Company Number: None

PATIENT
  Age: 63 Year
  Sex: Female
  Weight: 69.96 kg

DRUGS (16)
  1. DAPTOMYCIN [Suspect]
     Active Substance: DAPTOMYCIN
     Indication: Osteomyelitis
     Dosage: FREQUENCY : DAILY;?
     Route: 040
     Dates: start: 20221026, end: 20221109
  2. ACETAMINOPHEN\CODEINE PHOSPHATE [Concomitant]
     Active Substance: ACETAMINOPHEN\CODEINE PHOSPHATE
     Dates: start: 20221108, end: 20221109
  3. Aspirin-APAP-caffeine (250-250-65) [Concomitant]
     Dates: start: 20221107, end: 20221109
  4. Valium 2 mg [Concomitant]
     Dates: start: 20221030, end: 20221111
  5. ENOXAPARIN [Concomitant]
     Active Substance: ENOXAPARIN
     Dates: start: 20221021, end: 20221110
  6. Ferrous Sulfate 325 mg qOD [Concomitant]
     Dates: start: 20221018
  7. Gabapentin 100 mg TID PO [Concomitant]
     Dates: start: 20221017
  8. Hydrocodone-APAP 5-325 1-2 tab q6 prn [Concomitant]
     Dates: start: 20221101, end: 20221107
  9. Hydroxyzine 25 mg q PO PRN anxiety [Concomitant]
     Dates: start: 20221026
  10. Zofran 4 mg PO/IV q6 prn [Concomitant]
     Dates: start: 20221016
  11. Protonix 40 mg PO qAM [Concomitant]
     Dates: start: 20221018
  12. Paroxetine 60 mg PO qd [Concomitant]
     Dates: start: 20221017
  13. Miralax 17 g BID PRN [Concomitant]
     Dates: start: 20221029
  14. Senna 17.2 mg PO BID PRN [Concomitant]
     Dates: start: 20221029
  15. Spironolactone 25 mg PO [Concomitant]
     Dates: start: 20221108
  16. Trazodone 100 mg PO qhs [Concomitant]
     Dates: start: 20221017

REACTIONS (2)
  - Generalised tonic-clonic seizure [None]
  - Posterior reversible encephalopathy syndrome [None]

NARRATIVE: CASE EVENT DATE: 20221109
